FAERS Safety Report 10539140 (Version 2)
Quarter: 2015Q1

REPORT INFORMATION
  Report Type: Spontaneous
  Country: US (occurrence: US)
  Receive Date: 20141023
  Receipt Date: 20150130
  Transmission Date: 20150720
  Serious: No
  Sender: FDA-Public Use
  Company Number: US-PFIZER INC-2014292607

PATIENT
  Age: 71 Year
  Sex: Female

DRUGS (2)
  1. XELJANZ [Suspect]
     Active Substance: TOFACITINIB CITRATE
     Indication: ARTHRITIS
     Dosage: 5 MG, UNK
     Dates: start: 20141002, end: 20141009
  2. XELJANZ [Suspect]
     Active Substance: TOFACITINIB CITRATE
     Indication: FIBROMYALGIA

REACTIONS (1)
  - Nausea [Recovered/Resolved]
